FAERS Safety Report 6946742-5 (Version None)
Quarter: 2010Q3

REPORT INFORMATION
  Report Type: 
  Country: None (occurrence: None)
  Receive Date: 20100827
  Receipt Date: 20090812
  Transmission Date: 20110219
  Serious: No
  Sender: FDA-Public Use
  Company Number: US-ABBOTT-09P-163-0591345-00

PATIENT
  Sex: Male

DRUGS (6)
  1. NIASPAN [Suspect]
     Indication: BLOOD CHOLESTEROL INCREASED
     Dosage: DAILY AT HOUR OF SLEEP
     Route: 048
     Dates: start: 20090101, end: 20090101
  2. NIASPAN [Suspect]
     Indication: HIGH DENSITY LIPOPROTEIN DECREASED
     Dosage: DAILY AT HOUR OF SLEEP
     Route: 048
     Dates: start: 20090101, end: 20090101
  3. NIASPAN [Suspect]
     Indication: ASTHENIA
  4. MICARDIS [Concomitant]
     Indication: HYPERTENSION
  5. METOPROLOL [Concomitant]
     Indication: BLOOD CHOLESTEROL INCREASED
  6. VYTORIN [Concomitant]
     Indication: BLOOD CHOLESTEROL INCREASED

REACTIONS (3)
  - JOINT SWELLING [None]
  - RASH [None]
  - SKIN IRRITATION [None]
